FAERS Safety Report 9324503 (Version 2)
Quarter: 2013Q2

REPORT INFORMATION
  Report Type: Spontaneous
  Country: JP (occurrence: JP)
  Receive Date: 20130603
  Receipt Date: 20130613
  Transmission Date: 20140414
  Serious: No
  Sender: FDA-Public Use
  Company Number: JP-ASTRAZENECA-2013SE38419

PATIENT
  Age: 48 Year
  Sex: Female

DRUGS (3)
  1. ECARD HD [Suspect]
     Indication: HYPERTENSION
     Dosage: 1 DF, EVERYDAY
     Route: 048
     Dates: start: 20101210, end: 20130526
  2. BENIDIPINE HYDROCHLORIDE [Concomitant]
     Route: 048
  3. CARDENALIN [Concomitant]
     Route: 048

REACTIONS (1)
  - Asthenia [Recovered/Resolved]
